FAERS Safety Report 9034003 (Version 1)
Quarter: 2013Q1

REPORT INFORMATION
  Report Type: Spontaneous
  Country: US (occurrence: None)
  Receive Date: 20130116
  Receipt Date: 20130116
  Transmission Date: 20140127
  Serious: Yes (Other)
  Sender: FDA-Public Use
  Company Number: None

PATIENT
  Age: 80 Year
  Sex: Female

DRUGS (1)
  1. STIVARGA [Suspect]
     Dosage: 4 PO  QD  DAILY X 21 DAYS  ORAL
     Route: 048
     Dates: start: 20130110, end: 20130113

REACTIONS (5)
  - Dyspnoea [None]
  - Fatigue [None]
  - Decreased appetite [None]
  - Infection [None]
  - Muscular weakness [None]
